FAERS Safety Report 16021406 (Version 6)
Quarter: 2022Q3

REPORT INFORMATION
  Report Type: Spontaneous
  Country: DE (occurrence: DE)
  Receive Date: 20190301
  Receipt Date: 20220801
  Transmission Date: 20221027
  Serious: Yes (Other)
  Sender: FDA-Public Use
  Company Number: None

PATIENT
  Sex: Female

DRUGS (5)
  1. LETROZOLE [Suspect]
     Active Substance: LETROZOLE
     Indication: Breast cancer metastatic
     Dosage: 2.5 MILLIGRAM, ONCE A DAY
     Route: 048
     Dates: start: 20180413
  2. LETROZOLE [Suspect]
     Active Substance: LETROZOLE
     Dosage: 2.5 MILLIGRAM, ONCE A DAY
     Route: 048
     Dates: start: 20190221
  3. KISQALI [Suspect]
     Active Substance: RIBOCICLIB
     Indication: Breast cancer metastatic
     Dosage: 600 MILLIGRAM, ONCE A DAY
     Route: 048
     Dates: start: 20180413, end: 20190221
  4. KISQALI [Suspect]
     Active Substance: RIBOCICLIB
     Dosage: 600 MILLIGRAM, ONCE A DAY (SCHEMA 21 DAYS INTAKE, 7 DAYS PAUSE)
     Route: 048
     Dates: start: 20190222
  5. FULVESTRANT [Suspect]
     Active Substance: FULVESTRANT
     Indication: Breast cancer metastatic
     Dosage: 500 MILLIGRAM EVERY 4 WEEKS
     Route: 030
     Dates: start: 20190222

REACTIONS (5)
  - Aortic valve incompetence [Not Recovered/Not Resolved]
  - Cardiac failure [Not Recovered/Not Resolved]
  - Metastases to bone [Not Recovered/Not Resolved]
  - Neutropenia [Unknown]
  - Leukopenia [Not Recovered/Not Resolved]

NARRATIVE: CASE EVENT DATE: 20180509
